FAERS Safety Report 10231385 (Version 3)
Quarter: 2014Q3

REPORT INFORMATION
  Report Type: Spontaneous
  Country: US (occurrence: US)
  Receive Date: 20140611
  Receipt Date: 20140822
  Transmission Date: 20150326
  Serious: Yes (Death, Hospitalization, Other)
  Sender: FDA-Public Use
  Company Number: US-JNJFOC-20140606394

PATIENT
  Age: 77 Year
  Sex: Male

DRUGS (2)
  1. OXYGEN. [Concomitant]
     Active Substance: OXYGEN
  2. IMBRUVICA [Suspect]
     Active Substance: IBRUTINIB
     Indication: PRODUCT USED FOR UNKNOWN INDICATION
     Route: 065
     Dates: start: 20140529, end: 20140530

REACTIONS (8)
  - Respiratory failure [Fatal]
  - Dysphagia [Unknown]
  - Acute respiratory distress syndrome [Unknown]
  - Pseudomonas infection [Unknown]
  - Atrial fibrillation [Recovering/Resolving]
  - International normalised ratio increased [Recovered/Resolved]
  - Angioedema [Recovered/Resolved]
  - Pleural effusion [Unknown]

NARRATIVE: CASE EVENT DATE: 2014
